FAERS Safety Report 10152441 (Version 2)
Quarter: 2014Q2

REPORT INFORMATION
  Report Type: Spontaneous
  Country: US (occurrence: US)
  Receive Date: 20140505
  Receipt Date: 20140505
  Transmission Date: 20141212
  Serious: No
  Sender: FDA-Public Use
  Company Number: US-TEVA-392250USA

PATIENT
  Age: 36 Year
  Sex: Female

DRUGS (12)
  1. CLARAVIS [Suspect]
  2. LORATADINE [Concomitant]
  3. DELPAX [Concomitant]
  4. DULOXETINE HYDROCHLORIDE [Concomitant]
  5. MELOXICAM [Concomitant]
  6. METFORMIN [Concomitant]
  7. METAMIZOLE SODIUM [Concomitant]
  8. BROPRAIROLOL [Concomitant]
  9. TIAZODONE [Concomitant]
  10. ZAFURLUKEST [Concomitant]
  11. ZONAIJAIMON [Concomitant]
  12. TIZAMDINE [Concomitant]

REACTIONS (1)
  - Migraine [Recovered/Resolved with Sequelae]
